FAERS Safety Report 19439641 (Version 1)
Quarter: 2021Q2

REPORT INFORMATION
  Report Type: Report from Study
  Country: MX (occurrence: MX)
  Receive Date: 20210619
  Receipt Date: 20210619
  Transmission Date: 20210717
  Serious: Yes (Death)
  Sender: FDA-Public Use
  Company Number: NVSC2021MX138490

PATIENT
  Age: 71 Year
  Sex: Female
  Weight: 70 kg

DRUGS (1)
  1. CO?DIOVAN [Suspect]
     Active Substance: HYDROCHLOROTHIAZIDE\VALSARTAN
     Indication: HYPERTENSION
     Dosage: 1 DF, QD
     Route: 048
     Dates: start: 2019

REACTIONS (1)
  - Death [Fatal]

NARRATIVE: CASE EVENT DATE: 20210220
